FAERS Safety Report 7573839-1 (Version None)
Quarter: 2011Q2

REPORT INFORMATION
  Report Type: 
  Country: None (occurrence: None)
  Receive Date: 20110627
  Receipt Date: 20110620
  Transmission Date: 20111010
  Serious: Yes (Hospitalization)
  Sender: FDA-Public Use
  Company Number: A0899241A

PATIENT
  Age: 44 Year
  Sex: Female

DRUGS (1)
  1. AVANDIA [Suspect]
     Indication: DIABETES MELLITUS
     Route: 048
     Dates: start: 20040101, end: 20090101

REACTIONS (5)
  - MYOCARDIAL INFARCTION [None]
  - CHEST PAIN [None]
  - HEADACHE [None]
  - RASH [None]
  - DYSPNOEA [None]
